FAERS Safety Report 8287645-6 (Version None)
Quarter: 2012Q2

REPORT INFORMATION
  Report Type: 
  Country: None (occurrence: None)
  Receive Date: 20120416
  Receipt Date: 20120411
  Transmission Date: 20120825
  Serious: Yes (Life-Threatening, Hospitalization)
  Sender: FDA-Public Use
  Company Number: PHHY2012TR031058

PATIENT
  Age: 48 Year
  Sex: Male

DRUGS (2)
  1. TRIMEBUTINE [Suspect]
     Dosage: UNK
  2. DICLOFENAC POTASSIUM [Suspect]
     Dosage: UNK

REACTIONS (14)
  - DRUG ERUPTION [None]
  - RASH ERYTHEMATOUS [None]
  - PRURITUS [None]
  - PIGMENTATION DISORDER [None]
  - DERMATITIS [None]
  - PENILE PLAQUE [None]
  - ABDOMINAL TENDERNESS [None]
  - GLYCOSYLATED HAEMOGLOBIN INCREASED [None]
  - SKIN DEGENERATIVE DISORDER [None]
  - RASH PUSTULAR [None]
  - EPIDERMAL NECROSIS [None]
  - SKIN OEDEMA [None]
  - FREQUENT BOWEL MOVEMENTS [None]
  - BLOOD GLUCOSE INCREASED [None]
